FAERS Safety Report 12384271 (Version 3)
Quarter: 2019Q1

REPORT INFORMATION
  Report Type: Spontaneous
  Country: CA (occurrence: CA)
  Receive Date: 20160519
  Receipt Date: 20190122
  Transmission Date: 20190417
  Serious: Yes (Death, Hospitalization, Other)
  Sender: FDA-Public Use
  Company Number: CA-BIOVITRUM-2014CA0216

PATIENT
  Age: 16 Year
  Sex: Female

DRUGS (16)
  1. CYCLOSPORIN A [Suspect]
     Active Substance: CYCLOSPORINE
  2. PREDNISONE. [Concomitant]
     Active Substance: PREDNISONE
  3. ENBREL [Suspect]
     Active Substance: ETANERCEPT
     Indication: STILL^S DISEASE
     Dosage: 10 MG BIWEEKLY
     Route: 058
  4. REMICADE [Suspect]
     Active Substance: INFLIXIMAB
     Indication: STILL^S DISEASE
     Dosage: 10 MG/KG MONTHLY
  5. CALCIUM [Concomitant]
     Active Substance: CALCIUM
  6. LEFLUNOMIDE. [Concomitant]
     Active Substance: LEFLUNOMIDE
  7. ETOPOSIDE. [Suspect]
     Active Substance: ETOPOSIDE
     Indication: STILL^S DISEASE
  8. MTX [Suspect]
     Active Substance: METHOTREXATE SODIUM
     Indication: STILL^S DISEASE
  9. TACROLIMUS. [Suspect]
     Active Substance: TACROLIMUS
     Indication: STILL^S DISEASE
  10. HYDROXYCHLOROQUINE [Concomitant]
     Active Substance: HYDROXYCHLOROQUINE
  11. ALENDRONATE SODIUM. [Concomitant]
     Active Substance: ALENDRONATE SODIUM
  12. CYCLOPHOSPHAMIDE. [Concomitant]
     Active Substance: CYCLOPHOSPHAMIDE
  13. KINERET [Suspect]
     Active Substance: ANAKINRA
     Indication: STILL^S DISEASE
  14. IRON [Concomitant]
     Active Substance: IRON
  15. THALIDOMIDE [Suspect]
     Active Substance: THALIDOMIDE
     Indication: STILL^S DISEASE
  16. ACETAZOLAMIDE. [Concomitant]
     Active Substance: ACETAZOLAMIDE

REACTIONS (9)
  - Complications of bone marrow transplant [Fatal]
  - Splenomegaly [Fatal]
  - Hair follicle tumour benign [Unknown]
  - Hypotension [Fatal]
  - Tachycardia [Fatal]
  - Pyrexia [Fatal]
  - Hepatosplenic T-cell lymphoma [Fatal]
  - Thrombocytopenia [Fatal]
  - Abdominal pain upper [Fatal]

NARRATIVE: CASE EVENT DATE: 2009
